FAERS Safety Report 11966254 (Version 1)
Quarter: 2016Q1

REPORT INFORMATION
  Report Type: Spontaneous
  Country: US (occurrence: None)
  Receive Date: 20160126
  Receipt Date: 20160126
  Transmission Date: 20160526
  Serious: Yes (Other)
  Sender: FDA-Public Use
  Company Number: None

PATIENT
  Age: 46 Year
  Sex: Female
  Weight: 90.72 kg

DRUGS (4)
  1. MULTIVITAMIN [Concomitant]
     Active Substance: VITAMINS
  2. XYZAL [Concomitant]
     Active Substance: LEVOCETIRIZINE DIHYDROCHLORIDE
  3. MIRENA [Suspect]
     Active Substance: LEVONORGESTREL
     Indication: ENDOMETRIOSIS
     Dates: start: 20150601, end: 20151125
  4. FLONASE [Concomitant]
     Active Substance: FLUTICASONE PROPIONATE

REACTIONS (12)
  - Benign intracranial hypertension [None]
  - Headache [None]
  - Migraine [None]
  - Vision blurred [None]
  - Dizziness [None]
  - Head discomfort [None]
  - Hypoaesthesia oral [None]
  - Impaired work ability [None]
  - Nausea [None]
  - Vertigo [None]
  - Hypoaesthesia [None]
  - Motion sickness [None]

NARRATIVE: CASE EVENT DATE: 20160115
